FAERS Safety Report 4365944-8 (Version None)
Quarter: 2004Q2

REPORT INFORMATION
  Report Type: 
  Country: None (occurrence: None)
  Receive Date: 20040520
  Receipt Date: 20040505
  Transmission Date: 20050107
  Serious: Yes (Hospitalization)
  Sender: FDA-Public Use
  Company Number: S04-BEL-02085-02

PATIENT
  Sex: Male
  Weight: 3.6 kg

DRUGS (1)
  1. CIPRAMIL (CITALOPRAM HYDROBROMIDE) [Suspect]
     Dosage: 20 MG QD TRANSPLACENTAL
     Route: 064
     Dates: start: 20030601, end: 20040325

REACTIONS (7)
  - DRUG EXPOSURE DURING PREGNANCY [None]
  - DYSPNOEA [None]
  - HYPERTONIA NEONATAL [None]
  - HYPOPNOEA [None]
  - IRRITABILITY [None]
  - NEONATAL APNOEIC ATTACK [None]
  - TREMOR NEONATAL [None]
